FAERS Safety Report 6649484-9 (Version None)
Quarter: 2010Q1

REPORT INFORMATION
  Report Type: 
  Country: None (occurrence: None)
  Receive Date: 20100324
  Receipt Date: 20100324
  Transmission Date: 20100710
  Serious: Yes (Hospitalization)
  Sender: FDA-Public Use
  Company Number: None

PATIENT
  Age: 62 Year
  Sex: Female
  Weight: 61.2356 kg

DRUGS (1)
  1. ALENDRONATE SODIUM [Suspect]
     Indication: OSTEOPENIA
     Dosage: 1 TABLET WEEKLY PO
     Route: 048
     Dates: start: 20020101, end: 20100101

REACTIONS (8)
  - ARTHRALGIA [None]
  - BONE DISORDER [None]
  - BURSITIS [None]
  - FALL [None]
  - FEMUR FRACTURE [None]
  - FRACTURE [None]
  - PAIN [None]
  - WALKING AID USER [None]
